FAERS Safety Report 15020725 (Version 3)
Quarter: 2018Q3

REPORT INFORMATION
  Report Type: Report from Study
  Country: BR (occurrence: BR)
  Receive Date: 20180618
  Receipt Date: 20180914
  Transmission Date: 20181010
  Serious: Yes (Hospitalization, Disabling, Other)
  Sender: FDA-Public Use
  Company Number: BR-ACTELION-A-CH2018-173888

PATIENT
  Age: 31 Year
  Sex: Male
  Weight: 53 kg

DRUGS (2)
  1. ZAVESCA [Suspect]
     Active Substance: MIGLUSTAT
     Indication: NIEMANN-PICK DISEASE
     Dosage: 200 MG, TID
     Route: 048
     Dates: end: 2016
  2. ZAVESCA [Suspect]
     Active Substance: MIGLUSTAT
     Dosage: UNK
     Route: 048
     Dates: start: 200912

REACTIONS (8)
  - Condition aggravated [Unknown]
  - Product supply issue [Unknown]
  - Walking disability [Not Recovered/Not Resolved]
  - Salivary hypersecretion [Unknown]
  - Tracheostomy [Unknown]
  - Niemann-Pick disease [Unknown]
  - Urinary tract infection [Recovered/Resolved]
  - Aphasia [Unknown]

NARRATIVE: CASE EVENT DATE: 2012
